FAERS Safety Report 6362644-X (Version None)
Quarter: 2009Q3

REPORT INFORMATION
  Report Type: 
  Country: None (occurrence: None)
  Receive Date: 20090919
  Receipt Date: 20090603
  Transmission Date: 20100115
  Serious: No
  Sender: FDA-Public Use
  Company Number: US-ABBOTT-09P-163-0578282-00

PATIENT
  Age: 24 Year
  Sex: Male

DRUGS (3)
  1. HUMIRA [Suspect]
     Indication: CROHN'S DISEASE
     Route: 058
     Dates: start: 20090521
  2. MERCAPTOPURINE [Suspect]
     Indication: CROHN'S DISEASE
     Dosage: 150MG DAILY
     Dates: end: 20090514
  3. MERCAPTOPURINE [Suspect]
     Dosage: 100MG DAILY
     Dates: start: 20090514

REACTIONS (3)
  - MOTION SICKNESS [None]
  - NAUSEA [None]
  - VOMITING [None]
